FAERS Safety Report 5151303-7 (Version None)
Quarter: 2006Q4

REPORT INFORMATION
  Report Type: 
  Country: None (occurrence: None)
  Receive Date: 20061115
  Receipt Date: 20061017
  Transmission Date: 20070319
  Serious: Yes (Other)
  Sender: FDA-Public Use
  Company Number: US-GLAXOSMITHKLINE-A0623955A

PATIENT
  Age: 61 Year
  Sex: Male
  Weight: 85 kg

DRUGS (1)
  1. COREG [Suspect]
     Indication: CARDIAC FAILURE
     Route: 065

REACTIONS (2)
  - ADVERSE EVENT [None]
  - CARDIOMYOPATHY [None]
